FAERS Safety Report 6621841-6 (Version None)
Quarter: 2010Q1

REPORT INFORMATION
  Report Type: 
  Country: None (occurrence: None)
  Receive Date: 20100304
  Receipt Date: 20100217
  Transmission Date: 20100710
  Serious: Yes (Congenital Anomaly)
  Sender: FDA-Public Use
  Company Number: AUR-APL-2010-00473

PATIENT

DRUGS (2)
  1. MIRTAZAPINE [Suspect]
     Indication: DEPRESSION
     Dosage: 15MG, UNK, TRANSPLACENT
     Route: 064
  2. CETIRIZINE [Concomitant]

REACTIONS (2)
  - CONGENITAL MEGACOLON [None]
  - MATERNAL DRUGS AFFECTING FOETUS [None]
